FAERS Safety Report 19888299 (Version 1)
Quarter: 2021Q3

REPORT INFORMATION
  Report Type: Spontaneous
  Country: BR (occurrence: BR)
  Receive Date: 20210928
  Receipt Date: 20210928
  Transmission Date: 20211014
  Serious: Yes (Death)
  Sender: FDA-Public Use
  Company Number: BR-JNJFOC-20210940103

PATIENT

DRUGS (1)
  1. ZAVESCA [Suspect]
     Active Substance: MIGLUSTAT
     Indication: NIEMANN-PICK DISEASE
     Route: 048
     Dates: start: 20150605, end: 20170101

REACTIONS (3)
  - Death [Fatal]
  - Off label use [Unknown]
  - Product use issue [Unknown]

NARRATIVE: CASE EVENT DATE: 20150605
